FAERS Safety Report 20330325 (Version 1)
Quarter: 2022Q1

REPORT INFORMATION
  Report Type: Report from Study
  Country: US (occurrence: US)
  Receive Date: 20220113
  Receipt Date: 20220113
  Transmission Date: 20220423
  Serious: Yes (Other)
  Sender: FDA-Public Use
  Company Number: US-AMGEN-USACT2022001776

PATIENT
  Age: 74 Year
  Sex: Male
  Weight: 42.948 kg

DRUGS (47)
  1. DENOSUMAB [Suspect]
     Active Substance: DENOSUMAB
     Indication: Metastatic malignant melanoma
     Dosage: UNK
     Route: 058
  2. DENOSUMAB [Suspect]
     Active Substance: DENOSUMAB
     Dosage: 120 MILLIGRAM, Q4WK
     Route: 058
     Dates: start: 20211112, end: 20211112
  3. ZYLOPRIM [Concomitant]
     Active Substance: ALLOPURINOL
     Indication: Prophylaxis
     Dosage: 100 MILLIGRAM, QD
     Route: 048
     Dates: start: 20200827
  4. LOTREL [Concomitant]
     Active Substance: AMLODIPINE BESYLATE\BENAZEPRIL HYDROCHLORIDE
     Indication: Hypertension
     Dosage: 2.5/10 MILLIGRAM
     Dates: start: 20170711
  5. LOTREL [Concomitant]
     Active Substance: AMLODIPINE BESYLATE\BENAZEPRIL HYDROCHLORIDE
     Dosage: 2.5/10 MILLIGRAM
     Route: 048
     Dates: start: 2019
  6. PROPECIA [Concomitant]
     Active Substance: FINASTERIDE
     Indication: Androgenetic alopecia
     Dosage: 1 MILLIGRAM, QD
     Route: 048
     Dates: start: 2011
  7. METOPROLOL [Concomitant]
     Active Substance: METOPROLOL
     Indication: Atrial fibrillation
     Dosage: 50 MILLIGRAM, QD
     Route: 048
     Dates: start: 2019
  8. SIMVASTATIN [Concomitant]
     Active Substance: SIMVASTATIN
     Indication: Hyperlipidaemia
     Dosage: 20 MILLIGRAM, QD
     Route: 048
     Dates: start: 2017
  9. XARELTO [Concomitant]
     Active Substance: RIVAROXABAN
     Indication: Atrial fibrillation
     Dosage: 20 MILLIGRAM, QD
     Route: 048
     Dates: start: 2019
  10. HYDROCORTISONE 1% IN ABSORBASE [Concomitant]
     Active Substance: HYDROCORTISONE
     Indication: Rosacea
     Dosage: UNK UNK, QD
  11. COVID-19 VACCINE [Concomitant]
     Indication: Prophylaxis
     Dosage: UNK
     Dates: start: 20210128, end: 20210128
  12. COVID-19 VACCINE [Concomitant]
     Dosage: UNK
     Dates: start: 20210225, end: 20210225
  13. COVID-19 VACCINE [Concomitant]
     Dosage: UNK
     Dates: start: 20211206, end: 20211206
  14. AFRIN [OXYMETAZOLINE] [Concomitant]
     Indication: Epistaxis
     Dosage: UNK UNK, QD
     Dates: start: 202001
  15. CALCIUM\CHOLECALCIFEROL [Concomitant]
     Active Substance: CALCIUM\CHOLECALCIFEROL
     Indication: Supplementation therapy
     Dosage: 2 DOSAGE FORM (TABLETS), QD
     Route: 048
     Dates: start: 20210214, end: 20210219
  16. CHOLECALCIFEROL [Concomitant]
     Active Substance: CHOLECALCIFEROL
     Indication: Supplementation therapy
     Dosage: 2000 IU PER DROP, QD
     Dates: start: 20210214, end: 20210219
  17. CALCIUM [Concomitant]
     Active Substance: CALCIUM
     Indication: Supplementation therapy
     Dosage: 600 MILLIGRAM, EVERY OTHER DAY
     Route: 048
     Dates: start: 20210220
  18. HYDROCORTISONE [Concomitant]
     Active Substance: HYDROCORTISONE
     Indication: Rash papular
     Dosage: UNK UNK, AS NECESSARY
     Dates: start: 20210506
  19. PREDNISONE [Concomitant]
     Active Substance: PREDNISONE
     Indication: Arthritis
     Dosage: 10 MILLIGRAM, QD
     Route: 048
     Dates: start: 20210529, end: 20210601
  20. PREDNISONE [Concomitant]
     Active Substance: PREDNISONE
     Indication: Pneumonitis
     Dosage: 5 MILLIGRAM, QD
     Route: 048
     Dates: start: 20210610, end: 20210624
  21. PREDNISONE [Concomitant]
     Active Substance: PREDNISONE
     Indication: Paraesthesia
     Dosage: 10 MILLIGRAM, QD
     Route: 048
     Dates: start: 20210625, end: 20210709
  22. PREDNISONE [Concomitant]
     Active Substance: PREDNISONE
     Indication: Rash maculo-papular
     Dosage: 5 MILLIGRAM, QD
     Route: 048
     Dates: start: 20210709, end: 20210715
  23. PREDNISONE [Concomitant]
     Active Substance: PREDNISONE
     Dosage: 10 MILLIGRAM, QD
     Route: 048
     Dates: start: 20210718, end: 20210718
  24. PREDNISONE [Concomitant]
     Active Substance: PREDNISONE
     Dosage: 5 MILLIGRAM, QD
     Route: 048
     Dates: start: 20210717, end: 20210720
  25. PREDNISONE [Concomitant]
     Active Substance: PREDNISONE
     Dosage: 5 MILLIGRAM, QD
     Route: 048
     Dates: start: 20210723, end: 20210805
  26. PREDNISONE [Concomitant]
     Active Substance: PREDNISONE
     Dosage: 10 MILLIGRAM, QD
     Route: 048
     Dates: start: 20210806, end: 20210818
  27. PREDNISONE [Concomitant]
     Active Substance: PREDNISONE
     Dosage: 5 MILLIGRAM, QD
     Route: 048
     Dates: start: 20210828, end: 20210830
  28. PREDNISONE [Concomitant]
     Active Substance: PREDNISONE
     Dosage: 60 MILLIGRAM, QD
     Route: 048
     Dates: start: 20210831, end: 20210906
  29. PREDNISONE [Concomitant]
     Active Substance: PREDNISONE
     Dosage: 50 MILLIGRAM, QD
     Route: 048
     Dates: start: 20210907, end: 20210913
  30. PREDNISONE [Concomitant]
     Active Substance: PREDNISONE
     Dosage: 40 MILLIGRAM, QD
     Route: 048
     Dates: start: 20210914, end: 20210920
  31. PREDNISONE [Concomitant]
     Active Substance: PREDNISONE
     Dosage: 30 MILLIGRAM, QD
     Route: 048
     Dates: start: 20210921, end: 20211003
  32. PREDNISONE [Concomitant]
     Active Substance: PREDNISONE
     Dosage: 20 MILLIGRAM, QD
     Route: 048
     Dates: start: 20211004, end: 20211010
  33. PREDNISONE [Concomitant]
     Active Substance: PREDNISONE
     Dosage: 40 MILLIGRAM, QD
     Route: 048
     Dates: start: 20211011, end: 20211015
  34. PREDNISONE [Concomitant]
     Active Substance: PREDNISONE
     Dosage: 30 MILLIGRAM, QD
     Route: 048
     Dates: start: 20211016, end: 20211022
  35. PREDNISONE [Concomitant]
     Active Substance: PREDNISONE
     Dosage: 20 MILLIGRAM, QD
     Route: 048
     Dates: start: 20211023, end: 20211029
  36. PREDNISONE [Concomitant]
     Active Substance: PREDNISONE
     Dosage: 10 MILLIGRAM, QD
     Route: 048
     Dates: start: 20211030, end: 20211105
  37. PREDNISONE [Concomitant]
     Active Substance: PREDNISONE
     Dosage: 5 MILLIGRAM, QD
     Route: 048
     Dates: start: 20211106, end: 20211111
  38. PREDNISONE [Concomitant]
     Active Substance: PREDNISONE
     Dosage: 10 MILLIGRAM, QD
     Route: 048
     Dates: start: 20211217
  39. AUGMENTIN [Concomitant]
     Active Substance: AMOXICILLIN\CLAVULANATE POTASSIUM
     Indication: Infection prophylaxis
     Dosage: 1 DOSAGE FORM (TABLET), BID
     Route: 048
  40. TRIAMCINOLONE [Concomitant]
     Active Substance: TRIAMCINOLONE
     Indication: Rash maculo-papular
     Dosage: UNK UNK, AS NECESSARY
     Dates: start: 20211007
  41. INFLUENZA VIRUS VACCINE [Concomitant]
     Active Substance: INFLUENZA VIRUS VACCINE
     Indication: Prophylaxis
     Dosage: UNK
     Dates: start: 20211206, end: 20211206
  42. CALCIUM CARBONATE\CHOLECALCIFEROL [Concomitant]
     Active Substance: CALCIUM CARBONATE\CHOLECALCIFEROL
     Dosage: 500 MILLIGRAM, EVERY OTHER DAY
     Route: 048
  43. TOPROL XL [Concomitant]
     Active Substance: METOPROLOL SUCCINATE
     Dosage: 50 MILLIGRAM, QD
     Route: 048
     Dates: start: 20200111
  44. DELTASONE N [Concomitant]
     Dosage: 10 MILLIGRAM, QD
     Route: 048
     Dates: start: 20211018
  45. DELTASONE N [Concomitant]
     Dosage: 5 MILLIGRAM, QD
     Route: 048
     Dates: start: 20211216
  46. ZOCOR [Concomitant]
     Active Substance: SIMVASTATIN
     Dosage: 20 MILLIGRAM, QD
     Route: 048
     Dates: start: 20200119
  47. ATOVAQUONE [Concomitant]
     Active Substance: ATOVAQUONE
     Indication: Infection prophylaxis
     Dosage: 10 MILLILITER (1500 MG), QD
     Route: 048
     Dates: start: 20210923, end: 20211003

REACTIONS (1)
  - Pneumonitis [Not Recovered/Not Resolved]

NARRATIVE: CASE EVENT DATE: 20211210
